FAERS Safety Report 6550087-5 (Version None)
Quarter: 2010Q1

REPORT INFORMATION
  Report Type: 
  Country: None (occurrence: None)
  Receive Date: 20100119
  Receipt Date: 20100105
  Transmission Date: 20100710
  Serious: Yes (Hospitalization, Other)
  Sender: FDA-Public Use
  Company Number: AE-2009-330

PATIENT
  Age: 20 Year
  Sex: Male

DRUGS (4)
  1. FUROSEMIDE [Suspect]
  2. ALCOHOL [Suspect]
  3. MIRTAZAPINE [Suspect]
     Dosage: 225MG
  4. PARACETAMOL [Suspect]

REACTIONS (6)
  - ALCOHOL POISONING [None]
  - DYSTONIA [None]
  - HYPERTONIA [None]
  - MULTIPLE DRUG OVERDOSE [None]
  - MUSCLE SPASMS [None]
  - NAUSEA [None]
